FAERS Safety Report 13709242 (Version 1)
Quarter: 2017Q3

REPORT INFORMATION
  Report Type: Spontaneous
  Country: US (occurrence: US)
  Receive Date: 20170703
  Receipt Date: 20170703
  Transmission Date: 20171127
  Serious: No
  Sender: FDA-Public Use
  Company Number: US-CELGENEUS-USA-20170606378

PATIENT
  Sex: Female
  Weight: 64 kg

DRUGS (1)
  1. OTEZLA [Suspect]
     Active Substance: APREMILAST
     Indication: PSORIASIS
     Dosage: STARTER PACK (10 AND 20 MG)
     Route: 048
     Dates: start: 20160531, end: 20170614

REACTIONS (3)
  - Pain [Recovering/Resolving]
  - Headache [Unknown]
  - Muscle spasms [Recovering/Resolving]

NARRATIVE: CASE EVENT DATE: 2016
